FAERS Safety Report 4940206-6 (Version None)
Quarter: 2006Q1

REPORT INFORMATION
  Report Type: 
  Country: None (occurrence: None)
  Receive Date: 20060310
  Receipt Date: 20060301
  Transmission Date: 20060701
  Serious: Yes (Other)
  Sender: FDA-Public Use
  Company Number: NL-ABBOTT-06P-114-0326831-00

PATIENT
  Sex: Female

DRUGS (5)
  1. KLACID [Suspect]
     Indication: RESPIRATORY TRACT INFECTION
     Route: 048
  2. AMOXICILLIN TRIHYDRATE [Suspect]
     Indication: RESPIRATORY TRACT INFECTION
     Route: 048
  3. ACENOCOUMAROL [Suspect]
     Indication: VENOUS THROMBOSIS
  4. BUMETANIDE [Concomitant]
     Indication: DRUG USE FOR UNKNOWN INDICATION
     Route: 048
  5. SALBUTAMOL W/IPRATROPIUM [Concomitant]
     Indication: DRUG USE FOR UNKNOWN INDICATION
     Route: 055

REACTIONS (3)
  - BREAST HAEMATOMA [None]
  - HAEMATOMA [None]
  - INTERNATIONAL NORMALISED RATIO INCREASED [None]
